FAERS Safety Report 6160599-4 (Version None)
Quarter: 2009Q2

REPORT INFORMATION
  Report Type: 
  Country: None (occurrence: None)
  Receive Date: 20090416
  Receipt Date: 20090406
  Transmission Date: 20091009
  Serious: Yes (Other)
  Sender: FDA-Public Use
  Company Number: JHP200900112

PATIENT

DRUGS (2)
  1. EPINEPHRINE [Suspect]
     Indication: STATUS ASTHMATICUS
  2. KETALAR [Suspect]
     Indication: STATUS ASTHMATICUS

REACTIONS (1)
  - STRESS CARDIOMYOPATHY [None]
